FAERS Safety Report 5379289-0 (Version None)
Quarter: 2007Q3

REPORT INFORMATION
  Report Type: 
  Country: None (occurrence: None)
  Receive Date: 20070705
  Receipt Date: 20070620
  Transmission Date: 20080115
  Serious: Yes (Hospitalization)
  Sender: FDA-Public Use
  Company Number: DK-SHR-DK-2007-023750

PATIENT
  Age: 43 Year
  Sex: Female

DRUGS (4)
  1. YASMIN [Suspect]
     Route: 048
     Dates: start: 20060222, end: 20061104
  2. ANTACID TAB [Concomitant]
  3. MELBROSIA [Concomitant]
     Dosage: UNK, 2X/DAY
  4. VITAMINS WITH MINERALS [Concomitant]
     Dosage: UNK, 2X/DAY

REACTIONS (7)
  - CHEST PAIN [None]
  - DYSPNOEA [None]
  - LEUKOCYTOSIS [None]
  - NERVOUS SYSTEM DISORDER [None]
  - PYREXIA [None]
  - THROMBOCYTHAEMIA [None]
  - VISUAL DISTURBANCE [None]
